FAERS Safety Report 4927284-5 (Version None)
Quarter: 2006Q1

REPORT INFORMATION
  Report Type: 
  Country: None (occurrence: None)
  Receive Date: 20060228
  Receipt Date: 20050511
  Transmission Date: 20060701
  Serious: No
  Sender: FDA-Public Use
  Company Number: US-GLAXOSMITHKLINE-A0558145A

PATIENT
  Age: 69 Year
  Sex: Female

DRUGS (6)
  1. IMITREX [Suspect]
     Indication: MIGRAINE
     Dosage: 6MG AS REQUIRED
     Route: 058
     Dates: start: 19930430
  2. ATENOLOL [Concomitant]
  3. SYNTHROID [Concomitant]
  4. MS CONTIN [Concomitant]
  5. ASPIRIN [Concomitant]
  6. AMBIEN [Concomitant]

REACTIONS (4)
  - BLOOD PRESSURE INCREASED [None]
  - CHEST DISCOMFORT [None]
  - INJECTION SITE PAIN [None]
  - PAIN IN EXTREMITY [None]
